FAERS Safety Report 6244535-8 (Version None)
Quarter: 2009Q2

REPORT INFORMATION
  Report Type: 
  Country: None (occurrence: None)
  Receive Date: 20090619
  Receipt Date: 20090508
  Transmission Date: 20091009
  Serious: No
  Sender: FDA-Public Use
  Company Number: ALL1-2009-01322

PATIENT
  Age: 57 Year
  Sex: Female
  Weight: 67.1 kg

DRUGS (6)
  1. VYVANSE [Suspect]
     Indication: FATIGUE
     Dosage: 30 MG, 1X/DAY:QD, ORAL
     Route: 048
     Dates: start: 20090505, end: 20090505
  2. FLOVENT [Concomitant]
  3. ALBUTEROL /00139501/ (SALBUTAMOL) [Concomitant]
  4. SINGULAIR /01362601/ (MONTELUKAST) [Concomitant]
  5. ASTELIN /00085801/ (DIPROPHYLLINE) [Concomitant]
  6. HYDROCORTISONE [Concomitant]

REACTIONS (5)
  - ABDOMINAL PAIN UPPER [None]
  - BALANCE DISORDER [None]
  - FATIGUE [None]
  - MOOD ALTERED [None]
  - NAUSEA [None]
